FAERS Safety Report 15292309 (Version 1)
Quarter: 2018Q3

REPORT INFORMATION
  Report Type: Spontaneous
  Country: SE (occurrence: SE)
  Receive Date: 20180818
  Receipt Date: 20180818
  Transmission Date: 20181010
  Serious: Yes (Other)
  Sender: FDA-Public Use
  Company Number: SE-ACCORD-070911

PATIENT
  Age: 47 Year
  Sex: Female
  Weight: 70 kg

DRUGS (3)
  1. CYANOCOBALAMIN. [Concomitant]
     Active Substance: CYANOCOBALAMIN
  2. FINASTERIDE. [Suspect]
     Active Substance: FINASTERIDE
     Indication: PRODUCT USED FOR UNKNOWN INDICATION
     Dosage: EXPOSURE VIA SEXUAL PARTNER, TABLET 5 MG
     Route: 065
     Dates: start: 20130101, end: 20180424
  3. PREDNISOLONE. [Concomitant]
     Active Substance: PREDNISOLONE
     Dates: start: 19950101

REACTIONS (2)
  - Exposure via body fluid [Unknown]
  - Vulvovaginal dryness [Recovered/Resolved]

NARRATIVE: CASE EVENT DATE: 20130101
